FAERS Safety Report 13824267 (Version 4)
Quarter: 2017Q4

REPORT INFORMATION
  Report Type: Report from Study
  Country: US (occurrence: US)
  Receive Date: 20170802
  Receipt Date: 20171009
  Transmission Date: 20180320
  Serious: Yes (Hospitalization, Other)
  Sender: FDA-Public Use
  Company Number: US-CLOVIS ONCOLOGY-CLO-2017-000720

PATIENT
  Age: 44 Year
  Sex: Female

DRUGS (1)
  1. RUBRACA [Suspect]
     Active Substance: RUCAPARIB CAMSYLATE
     Indication: CERVIX CARCINOMA
     Dosage: 600 MG, BID
     Route: 048
     Dates: start: 2017, end: 201709

REACTIONS (9)
  - Adverse event [Unknown]
  - Malignant neoplasm progression [Unknown]
  - Vomiting [Unknown]
  - Off label use [Unknown]
  - Cough [Unknown]
  - Complication associated with device [Unknown]
  - Pneumothorax [Unknown]
  - Ureteral stent insertion [Unknown]
  - Headache [Unknown]

NARRATIVE: CASE EVENT DATE: 201708
